FAERS Safety Report 5565868-4 (Version None)
Quarter: 2007Q4

REPORT INFORMATION
  Report Type: 
  Country: None (occurrence: None)
  Receive Date: 20071213
  Receipt Date: 20071129
  Transmission Date: 20080405
  Serious: Yes (Hospitalization)
  Sender: FDA-Public Use
  Company Number: 02100-JPN-07-0607

PATIENT
  Age: 63 Year
  Sex: Male

DRUGS (8)
  1. ONE OF CILOSTAZOL, CLOPIDOGREL [Suspect]
     Indication: CEREBRAL INFARCTION
     Dosage: ONE OF 200 OR 75 MG
     Route: 048
     Dates: start: 20070221, end: 20070919
  2. ASPIRIN [Concomitant]
  3. FAMOTIDINE [Concomitant]
  4. GLIMEPIRIDE [Concomitant]
  5. MAGNESIUM OXIDE [Concomitant]
  6. HYDROCHLOROTHIAZIDE [Concomitant]
  7. BARNIDIPINE HYDROCHLORIDE [Concomitant]
  8. CANDESARTAN CILEXETIL [Concomitant]

REACTIONS (3)
  - CEREBRAL ARTERIOSCLEROSIS [None]
  - CEREBRAL ARTERY STENOSIS [None]
  - CEREBRAL INFARCTION [None]
